FAERS Safety Report 5944217-3 (Version None)
Quarter: 2008Q4

REPORT INFORMATION
  Report Type: 
  Country: None (occurrence: None)
  Receive Date: 20081021
  Receipt Date: 20071109
  Transmission Date: 20090506
  Serious: Yes (Hospitalization, Other)
  Sender: FDA-Public Use
  Company Number: HQWYE257704JUN04

PATIENT
  Age: 50 Year
  Sex: Female

DRUGS (4)
  1. PREMARIN [Suspect]
     Indication: HORMONE REPLACEMENT THERAPY
     Dosage: ORAL
     Route: 048
     Dates: start: 19951001, end: 20021001
  2. CYCRIN [Suspect]
     Dosage: ORAL
     Route: 048
     Dates: start: 19950101, end: 20020101
  3. MEDROXYPROGESTERONE [Suspect]
  4. PROVERA [Suspect]
     Indication: HORMONE REPLACEMENT THERAPY
     Dosage: ORAL
     Route: 048
     Dates: start: 19951001, end: 20021001

REACTIONS (1)
  - BREAST CANCER FEMALE [None]
